FAERS Safety Report 24865179 (Version 1)
Quarter: 2025Q1

REPORT INFORMATION
  Report Type: Spontaneous
  Country: FR (occurrence: FR)
  Receive Date: 20250121
  Receipt Date: 20250121
  Transmission Date: 20250409
  Serious: Yes (Death, Hospitalization, Other)
  Sender: AUROBINDO
  Company Number: FR-EMA-DD-20201117-kakwani_d-134153

PATIENT
  Age: 25 Year
  Sex: Female

DRUGS (6)
  1. PREDNISOLONE [Interacting]
     Active Substance: PREDNISOLONE
     Indication: Product used for unknown indication
     Dosage: 40 MILLIGRAM, ONCE A DAY
     Route: 048
  2. HYDROCORTISONE [Interacting]
     Active Substance: HYDROCORTISONE
     Indication: Product used for unknown indication
     Dosage: 100 MILLIGRAM, ONCE A DAY
     Route: 042
  3. MIFEPRISTONE [Interacting]
     Active Substance: MIFEPRISTONE
     Indication: Abortion induced
     Dosage: 200 MILLIGRAM, ONCE A DAY, SINGLE DOSE
     Route: 048
  4. MISOPROSTOL [Suspect]
     Active Substance: MISOPROSTOL
     Indication: Abortion induced
     Route: 048
  5. ROPIVACAINE [Concomitant]
     Active Substance: ROPIVACAINE
     Indication: Analgesic therapy
     Route: 008
  6. MEROPENEM [Concomitant]
     Active Substance: MEROPENEM
     Indication: Product used for unknown indication
     Dosage: 2 GRAM, 3 TIMES A DAY
     Route: 042

REACTIONS (14)
  - Respiratory failure [Fatal]
  - Hypoxic-ischaemic encephalopathy [Fatal]
  - Pneumonia [Fatal]
  - Infective pulmonary exacerbation of cystic fibrosis [Fatal]
  - Dyspnoea at rest [Unknown]
  - Bronchitis [Unknown]
  - Drug interaction [Unknown]
  - Maternal exposure during pregnancy [Unknown]
  - Incorrect dose administered [Unknown]
  - Metabolic alkalosis [Unknown]
  - Hypercapnia [Unknown]
  - Respiratory rate decreased [Unknown]
  - Chest discomfort [Unknown]
  - Increased bronchial secretion [Unknown]
